FAERS Safety Report 8364347-9 (Version None)
Quarter: 2012Q2

REPORT INFORMATION
  Report Type: 
  Country: None (occurrence: None)
  Receive Date: 20120516
  Receipt Date: 20120507
  Transmission Date: 20120825
  Serious: Yes (Other)
  Sender: FDA-Public Use
  Company Number: US-ASTRAZENECA-2010SE33790

PATIENT
  Age: 56 Year
  Sex: Female

DRUGS (9)
  1. NEXIUM [Suspect]
     Indication: GASTROOESOPHAGEAL REFLUX DISEASE
     Route: 048
  2. LIPITOR [Concomitant]
     Indication: BLOOD CHOLESTEROL INCREASED
     Route: 048
  3. LAMICTAL [Concomitant]
     Indication: CONVULSION
  4. RHINOCORT [Suspect]
     Route: 045
  5. LISINOPRIL [Suspect]
     Indication: BLOOD PRESSURE
     Route: 048
  6. SYMBICORT [Suspect]
     Route: 055
  7. REQUIP [Concomitant]
     Indication: RESTLESS LEGS SYNDROME
  8. CALCIUM WITH VITAMIN D [Concomitant]
  9. DEPAKOTE [Concomitant]

REACTIONS (12)
  - MULTIPLE FRACTURES [None]
  - DYSSTASIA [None]
  - INTERVERTEBRAL DISC PROTRUSION [None]
  - GAIT DISTURBANCE [None]
  - NERVE COMPRESSION [None]
  - PAIN [None]
  - TINNITUS [None]
  - WEIGHT INCREASED [None]
  - OSTEOPOROSIS [None]
  - MALAISE [None]
  - ACTIVITIES OF DAILY LIVING IMPAIRED [None]
  - MASTOID DISORDER [None]
